FAERS Safety Report 7474470-9 (Version None)
Quarter: 2011Q2

REPORT INFORMATION
  Report Type: 
  Country: None (occurrence: None)
  Receive Date: 20110512
  Receipt Date: 20110119
  Transmission Date: 20111010
  Serious: No
  Sender: FDA-Public Use
  Company Number: US-BAYER-2011-006769

PATIENT
  Age: 58 Year
  Sex: Female

DRUGS (1)
  1. AVELOX [Suspect]
     Indication: SINUSITIS
     Dosage: 400 MG, QD
     Route: 048
     Dates: start: 20110105, end: 20110111

REACTIONS (6)
  - PAIN IN EXTREMITY [None]
  - ARTHRALGIA [None]
  - TENDON INJURY [None]
  - GAIT DISTURBANCE [None]
  - MUSCLE SPASMS [None]
  - BONE PAIN [None]
